FAERS Safety Report 5782840-X (Version None)
Quarter: 2008Q2

REPORT INFORMATION
  Report Type: 
  Country: None (occurrence: None)
  Receive Date: 20080619
  Receipt Date: 20080609
  Transmission Date: 20081010
  Serious: Yes (Hospitalization)
  Sender: FDA-Public Use
  Company Number: 2008BI014960

PATIENT
  Age: 44 Year
  Sex: Female
  Weight: 45.3597 kg

DRUGS (1)
  1. TYSABRI [Suspect]
     Indication: MULTIPLE SCLEROSIS
     Dosage: 300 MG; QM; IV
     Route: 042
     Dates: start: 20061001

REACTIONS (3)
  - ABDOMINAL PAIN [None]
  - DYSPEPSIA [None]
  - GASTRIC DISORDER [None]
